FAERS Safety Report 8063318-X (Version None)
Quarter: 2012Q1

REPORT INFORMATION
  Report Type: 
  Country: None (occurrence: None)
  Receive Date: 20120123
  Receipt Date: 20120120
  Transmission Date: 20120608
  Serious: Yes (Death)
  Sender: FDA-Public Use
  Company Number: AU-B.I. PHARMACEUTICALS,INC./RIDGEFIELD-2012-AU-00119AU

PATIENT
  Age: 70 Year
  Sex: Male

DRUGS (9)
  1. PERINDOPRIL ERBUMINE [Concomitant]
  2. LASIX [Concomitant]
  3. PRADAXA [Suspect]
     Indication: ATRIAL FIBRILLATION
  4. SLOW-K [Concomitant]
  5. LANTUS [Concomitant]
  6. METOPROLOL TARTRATE [Concomitant]
  7. NOVORAPID [Concomitant]
  8. PRADAXA [Suspect]
     Indication: CEREBROVASCULAR ACCIDENT PROPHYLAXIS
  9. AMIODARONE HCL [Concomitant]

REACTIONS (1)
  - DEATH [None]
